FAERS Safety Report 10440873 (Version 1)
Quarter: 2014Q3

REPORT INFORMATION
  Report Type: Spontaneous
  Country: US (occurrence: None)
  Receive Date: 20140905
  Receipt Date: 20140905
  Transmission Date: 20150326
  Serious: Yes (Hospitalization)
  Sender: FDA-Public Use
  Company Number: 2511842

PATIENT
  Age: 70 Year
  Sex: Female
  Weight: 76.5 kg

DRUGS (4)
  1. NIPENT [Suspect]
     Active Substance: PENTOSTATIN
     Indication: CHRONIC LYMPHOCYTIC LEUKAEMIA
     Dosage: 48 MG MILLIGRAM(S), CYCLICAL
     Dates: start: 20121203, end: 20130422
  2. (RITUXIMAB) [Suspect]
     Active Substance: RITUXIMAB
     Indication: CHRONIC LYMPHOCYTIC LEUKAEMIA
     Dosage: 5560 MG MILLIGRAM(S) (CYCLICAL)
     Dates: start: 20121203, end: 20130422
  3. ALEMTUZUMAB [Suspect]
     Active Substance: ALEMTUZUMAB
     Indication: CHRONIC LYMPHOCYTIC LEUKAEMIA
     Dosage: 193 MG MILLIGRAM(S), CYCLICAL
     Dates: start: 20130715, end: 20130809
  4. (CYCLOPHOSPHAMIDE) [Suspect]
     Active Substance: CYCLOPHOSPHAMIDE
     Indication: CHRONIC LYMPHOCYTIC LEUKAEMIA
     Dosage: 7440 MG MILLIGRAM(S), CYCLICAL
     Dates: start: 20121203, end: 20130422

REACTIONS (2)
  - Chronic obstructive pulmonary disease [None]
  - Pneumonia [None]

NARRATIVE: CASE EVENT DATE: 20140618
